FAERS Safety Report 11143541 (Version 1)
Quarter: 2015Q2

REPORT INFORMATION
  Report Type: Spontaneous
  Country: US (occurrence: US)
  Receive Date: 20150526
  Receipt Date: 20150526
  Transmission Date: 20150821
  Serious: No
  Sender: FDA-Public Use
  Company Number: US-AMGEN-USASP2015049804

PATIENT
  Age: 21 Year
  Sex: Female

DRUGS (2)
  1. PRILOSEC [Concomitant]
     Active Substance: OMEPRAZOLE MAGNESIUM
     Dosage: UNK
  2. ENBREL [Suspect]
     Active Substance: ETANERCEPT
     Indication: PSORIASIS
     Dosage: 50 MG, QWK
     Route: 065
     Dates: start: 201412

REACTIONS (5)
  - Nasopharyngitis [Recovered/Resolved]
  - Injection site erythema [Unknown]
  - Influenza [Recovered/Resolved]
  - Injection site reaction [Unknown]
  - Injection site pruritus [Unknown]

NARRATIVE: CASE EVENT DATE: 201505
